FAERS Safety Report 9021451 (Version 1)
Quarter: 2013Q1

REPORT INFORMATION
  Report Type: Spontaneous
  Country: US (occurrence: US)
  Receive Date: 20130119
  Receipt Date: 20130119
  Transmission Date: 20140127
  Serious: No
  Sender: FDA-Public Use
  Company Number: US-ALLERGAN-1201277US

PATIENT
  Sex: Female
  Weight: 58.5 kg

DRUGS (4)
  1. BOTOX COSMETIC [Suspect]
     Indication: SKIN WRINKLING
     Dosage: 6 UNITS, SINGLE
     Route: 030
     Dates: start: 20120109, end: 20120109
  2. BOTOX COSMETIC [Suspect]
     Dosage: 24 UNITS, SINGLE
     Route: 030
     Dates: start: 20120103, end: 20120103
  3. BOTOX COSMETIC [Suspect]
     Dosage: 15 UNITS, SINGLE
     Dates: start: 20110104, end: 20110104
  4. BOTOX COSMETIC [Suspect]
     Dosage: 21 UNITS, SINGLE
     Dates: start: 20090710, end: 20090710

REACTIONS (2)
  - Facial paresis [Recovered/Resolved]
  - Facial pain [Recovered/Resolved]
